FAERS Safety Report 8717570 (Version 2)
Quarter: 2012Q4

REPORT INFORMATION
  Report Type: 
  Country: JP (occurrence: JP)
  Receive Date: 20120810
  Receipt Date: 20120928
  Transmission Date: 20130627
  Serious: Yes (Life-Threatening)
  Sender: FDA-Public Use
  Company Number: JP-B.I. PHARMACEUTICALS,INC./RIDGEFIELD-2012-BP-17627NB

PATIENT
  Age: 91 Year
  Sex: Female

DRUGS (19)
  1. TRAZENTA [Suspect]
     Indication: DIABETES MELLITUS
     Dosage: 5 mg
     Route: 048
     Dates: start: 20120605, end: 20120807
  2. IRBETAN [Concomitant]
     Dosage: 100 mg
     Route: 065
  3. ZETIA [Concomitant]
     Route: 065
  4. EPADEL S [Concomitant]
     Dosage: 1800 mg
     Route: 065
  5. ARIMIDEX [Concomitant]
     Route: 065
  6. ARGAMATE [Concomitant]
     Route: 065
  7. BAYASPIRIN [Concomitant]
     Route: 065
  8. ALLORIN [Concomitant]
     Route: 065
  9. HALFDIGOXIN [Concomitant]
     Dosage: 0.125 mg
     Route: 065
  10. FUROSEMIDE [Concomitant]
     Dosage: 20 mg
     Route: 065
  11. SHAKUYAKUKANZOTO [Concomitant]
     Route: 065
  12. POLAPREZINC [Concomitant]
     Route: 065
  13. BEZAFIBRATE [Concomitant]
     Route: 065
  14. SENNOSIDE [Concomitant]
     Route: 065
  15. VITANEURIN [Concomitant]
     Route: 065
  16. MYSLEE [Concomitant]
     Dosage: 5 mg
     Route: 065
  17. MAGMITT [Concomitant]
     Dosage: 330 mg
     Route: 065
  18. FAMOSTAGINE-D [Concomitant]
     Route: 065
  19. MILNAC [Concomitant]
     Route: 065

REACTIONS (2)
  - Hypoglycaemia [Recovered/Resolved]
  - Hypoglycaemia [Unknown]
